FAERS Safety Report 25573237 (Version 2)
Quarter: 2025Q3

REPORT INFORMATION
  Report Type: Spontaneous
  Country: EU (occurrence: EU)
  Receive Date: 20250717
  Receipt Date: 20250721
  Transmission Date: 20251021
  Serious: Yes (Hospitalization)
  Sender: PFIZER
  Company Number: None

PATIENT
  Age: 77 Year
  Sex: Female

DRUGS (2)
  1. PIPERACILLIN SODIUM\TAZOBACTAM SODIUM [Suspect]
     Active Substance: PIPERACILLIN SODIUM\TAZOBACTAM SODIUM
     Indication: Sepsis
     Dosage: 18G/24H
     Route: 042
     Dates: start: 20250614, end: 20250624
  2. AZITHROMYCIN [Suspect]
     Active Substance: AZITHROMYCIN
     Indication: Sepsis
     Dosage: 500 G, 1X/DAY
     Route: 048
     Dates: start: 20250614, end: 20250619

REACTIONS (4)
  - Rash [Recovering/Resolving]
  - Rash maculo-papular [Not Recovered/Not Resolved]
  - Skin exfoliation [Recovering/Resolving]
  - Dry skin [Recovering/Resolving]

NARRATIVE: CASE EVENT DATE: 20250625
